FAERS Safety Report 7859940-3 (Version None)
Quarter: 2011Q4

REPORT INFORMATION
  Report Type: 
  Country: None (occurrence: None)
  Receive Date: 20111021
  Receipt Date: 20111014
  Transmission Date: 20120403
  Serious: Yes (Hospitalization)
  Sender: FDA-Public Use
  Company Number: 2011028980

PATIENT
  Age: 51 Year
  Sex: Male
  Weight: 68.0396 kg

DRUGS (24)
  1. HIZENTRA [Suspect]
     Dosage: (2 GM 10 ML VIAL SUBCUTANEOUS)
     Route: 058
     Dates: start: 20110531
  2. HIZENTRA [Suspect]
  3. OXYCODONE HCL [Concomitant]
  4. HIZENTRA [Suspect]
     Dosage: (1 GM 5 ML VIAL SUBCUTANEOUS)
     Route: 058
     Dates: start: 20110531
  5. BACTRIM [Concomitant]
  6. FLEXERIL [Concomitant]
  7. HIZENTRA [Suspect]
     Dosage: (4 GM 20 ML VIA SUBCUTANEOUS
     Route: 059
     Dates: start: 20110531
  8. LISINOPRIL [Concomitant]
  9. CYANOCOBALAMIN [Concomitant]
  10. NORCO [Concomitant]
  11. OXYGEN [Concomitant]
  12. NABUMETONE [Concomitant]
  13. PRILOSEC [Concomitant]
  14. HIZENTRA [Suspect]
     Dosage: (2 GM 10 ML VIAL SUBCUTANEOUS)
     Route: 057
     Dates: start: 20110531
  15. HIZENTRA [Suspect]
     Dosage: (4 GM 20 ML VIAL SUBCUTANEOUS)
     Route: 058
     Dates: start: 20110921, end: 20110921
  16. EFFEXOR XR [Concomitant]
  17. HIZENTRA [Suspect]
     Indication: IMMUNODEFICIENCY COMMON VARIABLE
     Dosage: (1 GM 5 ML VIAL;  SUBCUTANEOUS
     Route: 058
     Dates: start: 20110531
  18. HIZENTRA [Suspect]
     Dosage: 7 GM (35 ML) DAILY FOR 5 DAYS THEN EVERY WEEK IN 2 SITES OVER 1-2 HOURS, SUBCUTANEOUS
     Route: 058
     Dates: start: 20110531
  19. HIZENTRA [Suspect]
     Dosage: (7 G 1X/WEEK, IN 2 SITES OVER 1-2 HOURS SUBCUTANEOUS)
     Route: 058
     Dates: start: 20110921, end: 20110921
  20. ATENOLOL [Concomitant]
  21. DIAZEPAM [Concomitant]
  22. LIODERM (LIDOCAINE) [Concomitant]
  23. HIZENTRA [Suspect]
     Dates: start: 20110921, end: 20110921
  24. TESTOSTERONE CYPRIONATE (TESTOSTERONE) [Concomitant]

REACTIONS (6)
  - BLOOD IMMUNOGLOBULIN G DECREASED [None]
  - SKIN INFECTION [None]
  - PAIN [None]
  - OEDEMA PERIPHERAL [None]
  - INFUSION SITE OEDEMA [None]
  - FATIGUE [None]
